FAERS Safety Report 4778802-1 (Version None)
Quarter: 2005Q3

REPORT INFORMATION
  Report Type: 
  Country: None (occurrence: None)
  Receive Date: 20050922
  Receipt Date: 20050907
  Transmission Date: 20060218
  Serious: Yes (Hospitalization)
  Sender: FDA-Public Use
  Company Number: 2005S1000266

PATIENT
  Age: 77 Year
  Sex: Male

DRUGS (1)
  1. ACITRETIN (ACITRETIN)  (25 MG) [Suspect]
     Indication: PSORIASIS
     Dosage: 50 MG; QD; PO
     Route: 048
     Dates: start: 20040101, end: 20050701

REACTIONS (2)
  - CEREBRAL INFARCTION [None]
  - MYOCARDIAL INFARCTION [None]
